FAERS Safety Report 7921144-3 (Version None)
Quarter: 2011Q4

REPORT INFORMATION
  Report Type: 
  Country: None (occurrence: None)
  Receive Date: 20111117
  Receipt Date: 20111114
  Transmission Date: 20120403
  Serious: Yes (Congenital Anomaly)
  Sender: FDA-Public Use
  Company Number: GXKR2011DE003308

PATIENT

DRUGS (10)
  1. ALBUTEROL SULFATE AUTOHALER [Concomitant]
     Indication: HYPERSENSITIVITY
     Dosage: UNK UKN, UNK
     Route: 064
  2. CEFUROXIME [Concomitant]
     Indication: BRONCHOPNEUMONIA
     Dosage: UNK UKN, UNK
     Route: 064
  3. PREDNISOLONE [Concomitant]
     Indication: INFERTILITY FEMALE
     Dosage: UNK UKN, UNK
     Route: 064
  4. ACETYLSALICYLIC ACID SRT [Concomitant]
     Indication: INFERTILITY FEMALE
     Route: 064
  5. NEPRESOL [Concomitant]
     Indication: HYPERTENSION
     Route: 064
  6. FUSIDIC ACID [Concomitant]
     Indication: BACTERIAL INFECTION
     Dosage: UNK UKN, UNK
     Route: 064
  7. METHYLDOPA [Suspect]
     Dosage: MATERNAL DOSE 750 MG, DAILY
     Route: 064
  8. FOLIC ACID [Concomitant]
     Indication: PROPHYLAXIS OF NEURAL TUBE DEFECT
     Dosage: UNK UKN, UNK
     Route: 064
  9. INFLUENZA VACCINES [Concomitant]
     Indication: IMMUNISATION
     Route: 064
  10. METOPROLOL TARTRATE [Suspect]
     Dosage: MATERNAL DOSE: 100 MG, QD
     Route: 064

REACTIONS (2)
  - TALIPES [None]
  - FOETAL EXPOSURE DURING PREGNANCY [None]
